FAERS Safety Report 6154119-8 (Version None)
Quarter: 2009Q2

REPORT INFORMATION
  Report Type: 
  Country: None (occurrence: None)
  Receive Date: 20090414
  Receipt Date: 20090406
  Transmission Date: 20091009
  Serious: Yes (Hospitalization)
  Sender: FDA-Public Use
  Company Number: DE-BAYER-200831432GPV

PATIENT
  Age: 27 Year
  Sex: Female
  Weight: 65 kg

DRUGS (4)
  1. MIRENA [Suspect]
     Indication: CONTRACEPTION
     Route: 015
     Dates: start: 20070208, end: 20080430
  2. ANTIBIOTICS [Concomitant]
     Indication: VULVOVAGINAL CANDIDIASIS
     Route: 065
     Dates: start: 20070802
  3. ANTIBIOTICS [Concomitant]
     Route: 065
  4. ANTIMYCOTICS [Concomitant]
     Indication: VULVOVAGINAL CANDIDIASIS
     Route: 065
     Dates: start: 20070803

REACTIONS (32)
  - ACNE [None]
  - ACNE PUSTULAR [None]
  - ALOPECIA [None]
  - ALTERED STATE OF CONSCIOUSNESS [None]
  - CYSTITIS [None]
  - DANDRUFF [None]
  - DEPRESSION [None]
  - DRY EYE [None]
  - ECZEMA [None]
  - EYE SWELLING [None]
  - FATIGUE [None]
  - GENERAL PHYSICAL HEALTH DETERIORATION [None]
  - HEADACHE [None]
  - HIRSUTISM [None]
  - HOT FLUSH [None]
  - HYPERHIDROSIS [None]
  - MALAISE [None]
  - MIGRAINE [None]
  - NIGHT SWEATS [None]
  - PIGMENTATION DISORDER [None]
  - PROCEDURAL PAIN [None]
  - PYELONEPHRITIS [None]
  - RASH MACULAR [None]
  - SCAR [None]
  - SKIN DISCOLOURATION [None]
  - SKIN HYPERPIGMENTATION [None]
  - SKIN ODOUR ABNORMAL [None]
  - SLEEP DISORDER [None]
  - URINARY TRACT INFECTION [None]
  - VAGINAL HAEMORRHAGE [None]
  - VISUAL IMPAIRMENT [None]
  - VULVOVAGINAL CANDIDIASIS [None]
